FAERS Safety Report 8243683-0 (Version None)
Quarter: 2012Q1

REPORT INFORMATION
  Report Type: 
  Country: None (occurrence: None)
  Receive Date: 20120329
  Receipt Date: 20120328
  Transmission Date: 20120608
  Serious: Yes (Other)
  Sender: FDA-Public Use
  Company Number: US-BAYER-2012-014084

PATIENT
  Age: 36 Year
  Sex: Female
  Weight: 49.887 kg

DRUGS (6)
  1. ACETAMINOPHEN [Concomitant]
     Dosage: 400 MG, UNK
     Dates: start: 20110101
  2. BETASERON [Suspect]
     Indication: RELAPSING-REMITTING MULTIPLE SCLEROSIS
     Dosage: 8 MIU, QOD
     Route: 058
     Dates: start: 20111003
  3. AMITRIPTYLINE HCL [Concomitant]
     Dosage: 25 MG, HS
     Dates: start: 20110101
  4. ZOLPIDEM [Concomitant]
     Indication: SLEEP DISORDER THERAPY
     Dosage: 10 MG, UNK
     Dates: start: 20110101
  5. GABAPENTIN [Concomitant]
     Indication: MUSCULOSKELETAL PAIN
     Dosage: 600 ?G, UNK
     Dates: start: 20090101
  6. LEVOTHYROXINE SODIUM [Concomitant]
     Indication: THYROID THERAPY
     Dosage: 50 ?G, QD
     Dates: start: 20100101

REACTIONS (2)
  - BACK PAIN [None]
  - CHEST PAIN [None]
